FAERS Safety Report 5097545-0 (Version None)
Quarter: 2006Q3

REPORT INFORMATION
  Report Type: 
  Country: None (occurrence: None)
  Receive Date: 20060901
  Receipt Date: 20060821
  Transmission Date: 20061208
  Serious: Yes (Death, Hospitalization)
  Sender: FDA-Public Use
  Company Number: E2090-00038-SPO-JP

PATIENT
  Age: 58 Year
  Sex: Male

DRUGS (12)
  1. ZONISAMIDE [Suspect]
     Indication: EPILEPSY
     Dosage: 200 MG, 2 IN 1 D, ORAL
     Route: 048
     Dates: start: 20060328, end: 20060610
  2. ADALAT-CR (NIFEDIPINE) [Concomitant]
  3. VALPROATE SODIUM [Concomitant]
  4. PHENOBARBITAL TAB [Concomitant]
  5. ALLELOCK (OLOPATADINE HYDROCHLORIDE) [Concomitant]
  6. HOMOCLOMIN (HOMOCHLORCYCLIZINE) [Concomitant]
  7. FOY (GABEXATE MESILATE) [Concomitant]
  8. LASIX [Concomitant]
  9. PREDNISOLONE [Concomitant]
  10. SULPERAZON [Concomitant]
  11. KAKODIN (DOPAMINE HYDROCHLORIDE) [Concomitant]
  12. NOR-ADRENALIN (NOREPINEPHRINE) [Concomitant]

REACTIONS (22)
  - ALANINE AMINOTRANSFERASE INCREASED [None]
  - ANOREXIA [None]
  - ASPARTATE AMINOTRANSFERASE INCREASED [None]
  - BLOOD PRESSURE DECREASED [None]
  - DIARRHOEA [None]
  - DISSEMINATED INTRAVASCULAR COAGULATION [None]
  - EOSINOPHILIA [None]
  - FLATULENCE [None]
  - HAEMODIALYSIS [None]
  - HAEMORRHAGIC DIATHESIS [None]
  - HEPATIC FUNCTION ABNORMAL [None]
  - JAUNDICE [None]
  - LIVER DISORDER [None]
  - MULTI-ORGAN FAILURE [None]
  - PANCYTOPENIA [None]
  - PHARYNGEAL HAEMORRHAGE [None]
  - PYREXIA [None]
  - RASH [None]
  - RENAL FAILURE ACUTE [None]
  - RESPIRATORY DEPRESSION [None]
  - THROMBOCYTOPENIA [None]
  - WHITE BLOOD CELL COUNT INCREASED [None]
